FAERS Safety Report 7217283-5 (Version None)
Quarter: 2011Q1

REPORT INFORMATION
  Report Type: 
  Country: None (occurrence: None)
  Receive Date: 20110110
  Receipt Date: 20101228
  Transmission Date: 20110831
  Serious: Yes (Death, Life-Threatening)
  Sender: FDA-Public Use
  Company Number: JP-CELGENEUS-087-21880-10122974

PATIENT
  Sex: Male
  Weight: 47 kg

DRUGS (13)
  1. REVLIMID [Suspect]
     Indication: MULTIPLE MYELOMA
     Route: 048
     Dates: start: 20100917, end: 20100922
  2. ALFAROL [Concomitant]
     Route: 048
     Dates: start: 20100917, end: 20100922
  3. NEUTROGIN [Concomitant]
     Route: 058
     Dates: start: 20100918, end: 20100922
  4. MAGMITT [Concomitant]
     Route: 048
     Dates: start: 20100917, end: 20100922
  5. UNASYN [Concomitant]
     Indication: BACTERIAL INFECTION
     Route: 048
     Dates: start: 20100917, end: 20100922
  6. LENADEX [Suspect]
     Indication: MULTIPLE MYELOMA
     Route: 048
     Dates: start: 20100917, end: 20100920
  7. ASPARA-CA [Concomitant]
     Route: 048
     Dates: start: 20100917, end: 20100922
  8. OMEPRAL [Concomitant]
     Indication: PROPHYLAXIS
     Route: 048
     Dates: start: 20100917, end: 20100922
  9. SELBEX [Concomitant]
     Indication: PROPHYLAXIS
     Route: 048
     Dates: start: 20100917, end: 20100922
  10. PREDNISOLONE [Concomitant]
     Indication: MULTIPLE MYELOMA
     Route: 048
     Dates: start: 20100917, end: 20100922
  11. ZYLORIC [Concomitant]
     Route: 048
     Dates: start: 20100917, end: 20100922
  12. ASPIRIN [Concomitant]
     Indication: PROPHYLAXIS
     Route: 048
     Dates: start: 20100917, end: 20100922
  13. LOXONIN [Concomitant]
     Indication: BACTERIAL INFECTION
     Route: 048
     Dates: start: 20100921, end: 20100922

REACTIONS (2)
  - SEPSIS [None]
  - BLOOD PRESSURE DECREASED [None]
